FAERS Safety Report 4488691-0 (Version None)
Quarter: 2004Q4

REPORT INFORMATION
  Report Type: 
  Country: None (occurrence: None)
  Receive Date: 20041025
  Receipt Date: 20041013
  Transmission Date: 20050328
  Serious: Yes (Other)
  Sender: FDA-Public Use
  Company Number: FR-SHR-04-023948

PATIENT
  Age: 31 Year
  Sex: Female
  Weight: 62 kg

DRUGS (2)
  1. MIRENA [Suspect]
     Indication: CONTRACEPTION
     Dosage: 20 UG/DAY, CONT, INTRA-UTERINE
     Route: 015
     Dates: start: 20020207
  2. SELECTOL (CELIPROLOL HYDROCHLORIDE) [Concomitant]

REACTIONS (2)
  - BREAST PAIN [None]
  - THROMBOPHLEBITIS SUPERFICIAL [None]
